FAERS Safety Report 5382899-8 (Version None)
Quarter: 2007Q3

REPORT INFORMATION
  Report Type: 
  Country: None (occurrence: None)
  Receive Date: 20070710
  Receipt Date: 20070703
  Transmission Date: 20080115
  Serious: Yes (Other)
  Sender: FDA-Public Use
  Company Number: IE-SANOFI-SYNTHELABO-A01200706066

PATIENT
  Age: 42 Year
  Sex: Male

DRUGS (2)
  1. FLUOROURACIL [Concomitant]
     Route: 042
     Dates: start: 20070424
  2. ELOXATIN [Suspect]
     Indication: COLON CANCER
     Route: 042
     Dates: start: 20070509, end: 20070509

REACTIONS (1)
  - LARYNGOSPASM [None]
